FAERS Safety Report 5010160-X (Version None)
Quarter: 2006Q2

REPORT INFORMATION
  Report Type: 
  Country: None (occurrence: None)
  Receive Date: 20060404
  Receipt Date: 20051122
  Transmission Date: 20061013
  Serious: No
  Sender: FDA-Public Use
  Company Number: US200511002387

PATIENT
  Age: 23 Year
  Sex: Female

DRUGS (1)
  1. CYMBALTA [Suspect]
     Indication: PREMENSTRUAL SYNDROME
     Dosage: SEE IMAGE
     Dates: start: 20050401

REACTIONS (2)
  - MENTAL IMPAIRMENT [None]
  - SEDATION [None]
